FAERS Safety Report 25729411 (Version 1)
Quarter: 2025Q3

REPORT INFORMATION
  Report Type: Report from Study
  Country: EU (occurrence: EU)
  Receive Date: 20250827
  Receipt Date: 20250827
  Transmission Date: 20251020
  Serious: Yes (Hospitalization)
  Sender: ROCHE
  Company Number: EU-ROCHE-10000371869

PATIENT

DRUGS (1)
  1. RITUXIMAB [Suspect]
     Active Substance: RITUXIMAB
     Indication: Pemphigus
     Route: 065

REACTIONS (5)
  - Thrombocytopenia [Unknown]
  - Bacteraemia [Unknown]
  - Off label use [Unknown]
  - Sepsis [Unknown]
  - Cellulitis [Unknown]
